FAERS Safety Report 9897917 (Version 1)
Quarter: 2014Q1

REPORT INFORMATION
  Report Type: Spontaneous
  Country: US (occurrence: US)
  Receive Date: 20140214
  Receipt Date: 20140214
  Transmission Date: 20141002
  Serious: No
  Sender: FDA-Public Use
  Company Number: US-PFIZER INC-2014042898

PATIENT
  Age: 57 Year
  Sex: Female
  Weight: 95.24 kg

DRUGS (6)
  1. CELEBREX [Suspect]
     Indication: ARTHROPATHY
     Dosage: 200 MG, 1X/DAY
  2. CELEBREX [Suspect]
     Indication: ARTHRITIS
  3. CELEBREX [Suspect]
     Indication: FIBROMYALGIA
  4. CYMBALTA [Concomitant]
     Dosage: UNK
  5. NEXIUM [Concomitant]
     Dosage: UNK
  6. LOTENSIN [Concomitant]
     Dosage: UNK

REACTIONS (2)
  - Off label use [Unknown]
  - Psoriasis [Unknown]
